FAERS Safety Report 10048657 (Version 3)
Quarter: 2014Q2

REPORT INFORMATION
  Report Type: Spontaneous
  Country: US (occurrence: US)
  Receive Date: 20140331
  Receipt Date: 20140509
  Transmission Date: 20141212
  Serious: No
  Sender: FDA-Public Use
  Company Number: US-PFIZER INC-2014090254

PATIENT
  Age: 48 Year
  Sex: Female
  Weight: 83.9 kg

DRUGS (12)
  1. CHANTIX [Suspect]
     Indication: SMOKING CESSATION THERAPY
     Dosage: 1 MG, 2X/DAY
     Dates: start: 201403
  2. GABAPENTIN [Interacting]
     Indication: NERVOUS SYSTEM DISORDER
     Dosage: 300 MG, 3X/DAY
  3. OMEPRAZOLE [Interacting]
     Indication: GASTROOESOPHAGEAL REFLUX DISEASE
     Dosage: 40 MG, DAILY
  4. IBUPROFEN [Interacting]
     Indication: SWELLING
     Dosage: 800 MG, 2X/DAY
  5. IBUPROFEN [Interacting]
     Indication: INFLAMMATION
  6. MORPHINE SULFATE [Interacting]
     Indication: PAIN
     Dosage: 30 MG, 3X/DAY
  7. LISINOPRIL [Interacting]
     Indication: HYPERTENSION
     Dosage: 30 MG, DAILY
  8. METHOCARBAMOL [Interacting]
     Indication: MUSCLE RELAXANT THERAPY
     Dosage: 750 MG, 4X/DAY
  9. CYMBALTA [Interacting]
     Indication: DEPRESSION
     Dosage: 60 MG, 2X/DAY
  10. METHADONE [Interacting]
     Indication: PAIN
     Dosage: 10 MG, UNK (ONE TO TWO TIMES A DAY )
  11. TRAMADOL [Interacting]
     Indication: PAIN
     Dosage: 50 MG, DAILY
  12. KEPPRA [Interacting]
     Indication: MIGRAINE
     Dosage: 250 MG, 5X/DAY

REACTIONS (3)
  - Drug interaction [Unknown]
  - Drug ineffective [Unknown]
  - Tobacco user [Unknown]
